FAERS Safety Report 9311826 (Version 1)
Quarter: 2013Q2

REPORT INFORMATION
  Report Type: Spontaneous
  Country: DK (occurrence: DK)
  Receive Date: 20130528
  Receipt Date: 20130528
  Transmission Date: 20140414
  Serious: Yes (Other)
  Sender: FDA-Public Use
  Company Number: PHHY2013DK051047

PATIENT
  Age: 20 Year
  Sex: Female
  Weight: 83 kg

DRUGS (2)
  1. LEPONEX [Suspect]
     Indication: SCHIZOPHRENIA
     Dosage: 300 MG, QD
     Route: 048
     Dates: start: 20130110
  2. VENLAFAXIN HEXAL [Concomitant]
     Indication: DEPRESSIVE SYMPTOM
     Route: 048

REACTIONS (2)
  - Bone marrow failure [Recovering/Resolving]
  - Leukopenia [Recovering/Resolving]
